FAERS Safety Report 5419618-2 (Version None)
Quarter: 2007Q3

REPORT INFORMATION
  Report Type: 
  Country: None (occurrence: None)
  Receive Date: 20070816
  Receipt Date: 20070816
  Transmission Date: 20080115
  Serious: Yes (Other)
  Sender: FDA-Public Use
  Company Number: None

PATIENT
  Age: 28 Year
  Sex: Female
  Weight: 66.6788 kg

DRUGS (4)
  1. CHANTIX [Suspect]
     Indication: SMOKING CESSATION THERAPY
     Dosage: PO
     Route: 048
     Dates: start: 20070726, end: 20070729
  2. PAXIL CR [Concomitant]
  3. ORTHO-CEPT 28 [Concomitant]
  4. CENTRUM VITAMINS [Concomitant]

REACTIONS (1)
  - DRUG HYPERSENSITIVITY [None]
